FAERS Safety Report 8851733 (Version 1)
Quarter: 2012Q4

REPORT INFORMATION
  Report Type: Spontaneous
  Country: US (occurrence: None)
  Receive Date: 20121017
  Receipt Date: 20121017
  Transmission Date: 20130627
  Serious: Yes (Hospitalization)
  Sender: FDA-Public Use
  Company Number: IMP_06022_2012

PATIENT
  Age: 25 Year
  Sex: Male

DRUGS (3)
  1. OMEPRAZOLE [Suspect]
     Indication: PROPHYLAXIS AGAINST GASTROINTESTINAL ULCER
     Dosage: (DF)
  2. METHOTREXATE [Suspect]
     Dosage: (12 g/m2 (20 g))
  3. DEXAMETHASONE [Concomitant]

REACTIONS (9)
  - Grand mal convulsion [None]
  - Dialysis [None]
  - Blood creatinine increased [None]
  - Mucosal inflammation [None]
  - Headache [None]
  - Oral candidiasis [None]
  - Thrombocytopenia [None]
  - Toxicity to various agents [None]
  - Drug interaction [None]
